FAERS Safety Report 9040201 (Version 1)
Quarter: 2013Q1

REPORT INFORMATION
  Report Type: Report from Study
  Country: US (occurrence: US)
  Receive Date: 20130129
  Receipt Date: 20130129
  Transmission Date: 20140127
  Serious: No
  Sender: FDA-Public Use
  Company Number: US-ABBOTT-11P-163-0874860-00

PATIENT
  Age: 15 Year
  Sex: Female

DRUGS (8)
  1. HUMIRA 40 MG/0.8 ML PEN [Suspect]
     Indication: COLITIS ULCERATIVE
     Dates: start: 20111020
  2. HUMIRA 40 MG/0.8 ML PEN [Suspect]
     Dates: start: 20111103
  3. HUMIRA 40 MG/0.8 ML PEN [Suspect]
  4. IRON [Concomitant]
     Indication: MINERAL SUPPLEMENTATION
  5. IRON [Concomitant]
     Indication: COLITIS ULCERATIVE
  6. PREVACID [Concomitant]
     Indication: COLITIS ULCERATIVE
     Dosage: DAILY
  7. FLAGYL [Concomitant]
     Indication: COLITIS ULCERATIVE
  8. PREDNISONE [Concomitant]
     Indication: COLITIS ULCERATIVE

REACTIONS (11)
  - Injection site pain [Recovered/Resolved]
  - Injection site pruritus [Recovered/Resolved]
  - Injection site urticaria [Recovered/Resolved]
  - Injection site vesicles [Recovered/Resolved]
  - Erythema [Recovered/Resolved]
  - Pain [Recovered/Resolved]
  - Injection site bruising [Recovered/Resolved]
  - Injection site swelling [Recovering/Resolving]
  - Injection site haemorrhage [Not Recovered/Not Resolved]
  - Injection site vesicles [Recovered/Resolved]
  - Injection site urticaria [Not Recovered/Not Resolved]
